FAERS Safety Report 5692792-9 (Version None)
Quarter: 2008Q2

REPORT INFORMATION
  Report Type: 
  Country: None (occurrence: None)
  Receive Date: 20080401
  Receipt Date: 20080326
  Transmission Date: 20081010
  Serious: Yes (Death)
  Sender: FDA-Public Use
  Company Number: 163-21880-08020298 (1)

PATIENT
  Age: 83 Year
  Sex: Male

DRUGS (1)
  1. REVLIMID [Suspect]
     Indication: MULTIPLE MYELOMA
     Dosage: 10 MG, 1 IN 1 D, ORAL
     Route: 048
     Dates: start: 20061208, end: 20070706

REACTIONS (7)
  - CARDIAC FAILURE CONGESTIVE [None]
  - DIZZINESS [None]
  - INFECTION [None]
  - MALAISE [None]
  - PNEUMONIA [None]
  - PYREXIA [None]
  - RASH [None]
